FAERS Safety Report 5036607-0 (Version None)
Quarter: 2006Q2

REPORT INFORMATION
  Report Type: 
  Country: None (occurrence: None)
  Receive Date: 20060614
  Receipt Date: 20060330
  Transmission Date: 20061013
  Serious: Yes (Other)
  Sender: FDA-Public Use
  Company Number: BDI-008068

PATIENT
  Sex: Female

DRUGS (1)
  1. MULTIHANCE [Suspect]
     Indication: NUCLEAR MAGNETIC RESONANCE IMAGING
     Dosage: SY
     Dates: start: 20060323, end: 20060323

REACTIONS (8)
  - ANXIETY [None]
  - BLOOD PRESSURE INCREASED [None]
  - COUGH [None]
  - HAEMOPTYSIS [None]
  - HEART RATE INCREASED [None]
  - RASH ERYTHEMATOUS [None]
  - THROAT TIGHTNESS [None]
  - TREMOR [None]
